FAERS Safety Report 9681773 (Version 2)
Quarter: 2013Q4

REPORT INFORMATION
  Report Type: Spontaneous
  Country: US (occurrence: US)
  Receive Date: 20131010
  Receipt Date: 20131010
  Transmission Date: 20140711
  Serious: Yes (Other)
  Sender: FDA-Public Use
  Company Number: US-DRREDDYS-USA/USA/13/0034713

PATIENT
  Sex: Male

DRUGS (2)
  1. ZENATANE [Suspect]
     Indication: ACNE
     Route: 065
     Dates: start: 20130612
  2. ZENATANE [Suspect]
     Route: 065
     Dates: start: 20130726, end: 20130916

REACTIONS (1)
  - Mood altered [Recovered/Resolved]
